FAERS Safety Report 20531016 (Version 1)
Quarter: 2022Q1

REPORT INFORMATION
  Report Type: Spontaneous
  Country: US (occurrence: US)
  Receive Date: 20220301
  Receipt Date: 20220301
  Transmission Date: 20220423
  Serious: No
  Sender: FDA-Public Use
  Company Number: US-BIOGEN-2021BI00995390

PATIENT
  Sex: Female

DRUGS (1)
  1. TECFIDERA [Suspect]
     Active Substance: DIMETHYL FUMARATE
     Indication: Multiple sclerosis
     Dosage: 240
     Route: 065
     Dates: start: 2020

REACTIONS (2)
  - Raynaud^s phenomenon [Unknown]
  - Hot flush [Unknown]
